FAERS Safety Report 9103151 (Version 2)
Quarter: 2013Q1

REPORT INFORMATION
  Report Type: Spontaneous
  Country: GB (occurrence: GB)
  Receive Date: 20130219
  Receipt Date: 20130227
  Transmission Date: 20140127
  Serious: No
  Sender: FDA-Public Use
  Company Number: PHFR2013GB001236

PATIENT
  Age: 60 Year
  Sex: Male

DRUGS (3)
  1. VOLTAROL [Suspect]
     Indication: INFLAMMATION
     Dosage: 50 MG
     Route: 048
  2. INDOMETHACIN [Concomitant]
     Indication: GOUT
  3. ALLOPURINOL [Concomitant]
     Indication: GOUT
     Dosage: UNK UKN, UNK
     Route: 048

REACTIONS (1)
  - Osteonecrosis [Unknown]
